FAERS Safety Report 8226267-X (Version None)
Quarter: 2012Q1

REPORT INFORMATION
  Report Type: 
  Country: None (occurrence: None)
  Receive Date: 20120321
  Receipt Date: 20120314
  Transmission Date: 20120608
  Serious: Yes (Other)
  Sender: FDA-Public Use
  Company Number: PHHY2012MX023649

PATIENT
  Sex: Male

DRUGS (3)
  1. CAPTOPRIL [Concomitant]
     Dosage: UNK, UNK
  2. EXFORGE [Suspect]
     Indication: HYPERTENSION
     Dosage: 1 DF, QD
     Dates: start: 20120218
  3. PROPAFENONE HCL [Concomitant]
     Dosage: UNK, UNK
     Dates: start: 20120218

REACTIONS (5)
  - FLUID RETENTION [None]
  - RENAL DISORDER [None]
  - PROSTATITIS [None]
  - NEOPLASM PROSTATE [None]
  - ANAEMIA [None]
